FAERS Safety Report 4805345-9 (Version None)
Quarter: 2005Q4

REPORT INFORMATION
  Report Type: 
  Country: None (occurrence: None)
  Receive Date: 20051020
  Receipt Date: 20051011
  Transmission Date: 20060501
  Serious: Yes (Disabling)
  Sender: FDA-Public Use
  Company Number: PR-MERCK-0510USA06567

PATIENT
  Sex: Female

DRUGS (3)
  1. VIOXX [Suspect]
     Indication: MUSCULOSKELETAL DISORDER
     Route: 048
     Dates: start: 20030101
  2. BEXTRA [Suspect]
     Indication: MUSCULOSKELETAL DISORDER
     Route: 065
     Dates: start: 20030101
  3. CELEBREX [Suspect]
     Indication: MUSCULOSKELETAL DISORDER
     Route: 065
     Dates: start: 20030101

REACTIONS (9)
  - ASTHENIA [None]
  - CARDIOVASCULAR DISORDER [None]
  - DEPRESSION [None]
  - FATIGUE [None]
  - GAIT DISTURBANCE [None]
  - HYPOAESTHESIA [None]
  - MOVEMENT DISORDER [None]
  - OEDEMA PERIPHERAL [None]
  - PAIN [None]
